FAERS Safety Report 19354076 (Version 2)
Quarter: 2021Q2

REPORT INFORMATION
  Report Type: Spontaneous
  Country: GB (occurrence: GB)
  Receive Date: 20210602
  Receipt Date: 20210611
  Transmission Date: 20210717
  Serious: Yes (Other)
  Sender: FDA-Public Use
  Company Number: GB-ORGANON-O2105GBR002408

PATIENT
  Age: 24 Year
  Sex: Female
  Weight: 68.03 kg

DRUGS (3)
  1. CYCLOSPORINE. [Concomitant]
     Active Substance: CYCLOSPORINE
     Indication: ILL-DEFINED DISORDER
     Dosage: UNK
  2. ELOCON [Suspect]
     Active Substance: MOMETASONE FUROATE
     Indication: ECZEMA
     Dosage: UNK
     Route: 061
     Dates: start: 20210101, end: 20210115
  3. HYDROCORTISONE. [Suspect]
     Active Substance: HYDROCORTISONE
     Indication: ECZEMA
     Dosage: 1%,UNK
     Route: 061
     Dates: start: 20210101, end: 20210115

REACTIONS (9)
  - Skin weeping [Not Recovered/Not Resolved]
  - Insomnia [Not Recovered/Not Resolved]
  - Skin fissures [Not Recovered/Not Resolved]
  - Hot flush [Not Recovered/Not Resolved]
  - Pyrexia [Not Recovered/Not Resolved]
  - Alopecia [Not Recovered/Not Resolved]
  - Depression [Not Recovered/Not Resolved]
  - Skin exfoliation [Not Recovered/Not Resolved]
  - Pruritus [Not Recovered/Not Resolved]

NARRATIVE: CASE EVENT DATE: 20210116
